FAERS Safety Report 4334087-1 (Version None)
Quarter: 2004Q1

REPORT INFORMATION
  Report Type: 
  Country: None (occurrence: None)
  Receive Date: 20040329
  Receipt Date: 20040129
  Transmission Date: 20041129
  Serious: No
  Sender: FDA-Public Use
  Company Number: 03P-163-0245087-00

PATIENT
  Age: 71 Year
  Sex: Male
  Weight: 99.7913 kg

DRUGS (12)
  1. HUMIRA [Suspect]
     Indication: RHEUMATOID ARTHRITIS
     Dosage: 40 MG, 1 IN 2 WK, SUBCUTANEOUS
     Route: 058
     Dates: start: 20031016, end: 20031217
  2. OXYGEN [Concomitant]
  3. PREDNISONE [Concomitant]
  4. LEFLUNOMIDE [Concomitant]
  5. FUROSEMIDE [Concomitant]
  6. POTASSIUM [Concomitant]
  7. ESOMEPRAZOLE [Concomitant]
  8. PROPANOLOL HYDROCHLORIDE [Concomitant]
  9. CALCIUM [Concomitant]
  10. ASPIRIN [Concomitant]
  11. TOCOPHEROL CONCENTRATE CAP [Concomitant]
  12. MAGNESIUM [Concomitant]

REACTIONS (8)
  - ARTHRALGIA [None]
  - CHILLS [None]
  - HOT FLUSH [None]
  - JOINT SWELLING [None]
  - NASOPHARYNGITIS [None]
  - PYREXIA [None]
  - RHEUMATOID ARTHRITIS [None]
  - SINUSITIS [None]
